FAERS Safety Report 4305399-2 (Version None)
Quarter: 2004Q1

REPORT INFORMATION
  Report Type: 
  Country: None (occurrence: None)
  Receive Date: 20040226
  Receipt Date: 20031010
  Transmission Date: 20041129
  Serious: Yes (Other)
  Sender: FDA-Public Use
  Company Number: US-BRISTOL-MYERS SQUIBB COMPANY-12408290

PATIENT
  Age: 84 Year
  Sex: Female
  Weight: 76 kg

DRUGS (9)
  1. TAXOL [Suspect]
     Indication: BREAST CANCER
     Route: 042
     Dates: start: 20031009, end: 20031009
  2. KYTRIL [Concomitant]
     Indication: PREMEDICATION
     Route: 042
  3. DECADRON [Concomitant]
     Indication: PREMEDICATION
     Route: 042
  4. BENADRYL [Concomitant]
     Indication: PREMEDICATION
     Route: 042
  5. ZANTAC [Concomitant]
     Indication: PREMEDICATION
     Route: 042
  6. REGLAN [Concomitant]
  7. NEXIUM [Concomitant]
  8. EYE DROPS [Concomitant]
     Route: 031
  9. CITRUCEL [Concomitant]

REACTIONS (1)
  - ANAPHYLACTIC SHOCK [None]
